FAERS Safety Report 25475965 (Version 1)
Quarter: 2025Q2

REPORT INFORMATION
  Report Type: Spontaneous
  Country: BR (occurrence: BR)
  Receive Date: 20250625
  Receipt Date: 20250625
  Transmission Date: 20250717
  Serious: Yes (Other)
  Sender: COLLEGIUM PHARMACEUTICAL
  Company Number: BR-GRUNENTHAL-2025-108662

PATIENT
  Sex: Female

DRUGS (8)
  1. NUCYNTA [Suspect]
     Active Substance: TAPENTADOL HYDROCHLORIDE
     Indication: Pain
     Route: 048
     Dates: start: 20250609, end: 20250611
  2. PREGABALIN [Concomitant]
     Active Substance: PREGABALIN
     Indication: Product used for unknown indication
     Route: 065
  3. DULOXETINE HYDROCHLORIDE [Concomitant]
     Active Substance: DULOXETINE HYDROCHLORIDE
     Indication: Product used for unknown indication
     Route: 065
  4. OMEPRAZOLE [Concomitant]
     Active Substance: OMEPRAZOLE
     Indication: Product used for unknown indication
     Route: 065
  5. DIVIDOL [BUTYLSCOPOLAMINE BROMIDE] [Concomitant]
     Indication: Product used for unknown indication
     Route: 065
  6. ALFAEPOETINA [Concomitant]
     Indication: Product used for unknown indication
     Route: 065
  7. CIPROFIBRATE [Concomitant]
     Active Substance: CIPROFIBRATE
     Indication: Product used for unknown indication
     Route: 065
  8. PURAN [Concomitant]
     Active Substance: LEVOTHYROXINE SODIUM
     Indication: Product used for unknown indication
     Route: 065

REACTIONS (6)
  - Mobility decreased [Recovered/Resolved]
  - Malaise [Recovered/Resolved]
  - Hallucination [Recovered/Resolved]
  - Tremor [Recovered/Resolved]
  - Hypoaesthesia [Recovered/Resolved]
  - Dizziness [Not Recovered/Not Resolved]

NARRATIVE: CASE EVENT DATE: 20250601
